FAERS Safety Report 7156638-4 (Version None)
Quarter: 2010Q4

REPORT INFORMATION
  Report Type: 
  Country: None (occurrence: None)
  Receive Date: 20101214
  Receipt Date: 20100108
  Transmission Date: 20110411
  Serious: No
  Sender: FDA-Public Use
  Company Number: US-ASTRAZENECA-2008UW18369

PATIENT
  Age: 70 Year
  Sex: Male
  Weight: 80.3 kg

DRUGS (5)
  1. CRESTOR [Suspect]
     Indication: ARTERIAL OCCLUSIVE DISEASE
     Route: 048
     Dates: start: 20080615
  2. CRESTOR [Suspect]
     Route: 048
     Dates: start: 20080718
  3. ASPIRIN [Concomitant]
  4. MICARDIS [Concomitant]
  5. VERAPAMIL [Concomitant]

REACTIONS (3)
  - EYE IRRITATION [None]
  - HALO VISION [None]
  - PROSTATIC SPECIFIC ANTIGEN INCREASED [None]
